FAERS Safety Report 25774833 (Version 2)
Quarter: 2025Q3

REPORT INFORMATION
  Report Type: Spontaneous
  Country: EU (occurrence: EU)
  Receive Date: 20250908
  Receipt Date: 20250918
  Transmission Date: 20251021
  Serious: Yes (Hospitalization)
  Sender: NOVO NORDISK
  Company Number: None

PATIENT
  Age: 59 Year
  Sex: Female
  Weight: 109 kg

DRUGS (1)
  1. WEGOVY [Suspect]
     Active Substance: SEMAGLUTIDE
     Indication: Obesity
     Route: 030
     Dates: start: 20250612, end: 20250717

REACTIONS (1)
  - Hydrocholecystis [Recovering/Resolving]

NARRATIVE: CASE EVENT DATE: 20250703
